FAERS Safety Report 5902376-2 (Version None)
Quarter: 2008Q3

REPORT INFORMATION
  Report Type: 
  Country: None (occurrence: None)
  Receive Date: 20080919
  Receipt Date: 20080710
  Transmission Date: 20090109
  Serious: No
  Sender: FDA-Public Use
  Company Number: US-WYE-H05051708

PATIENT
  Age: 49 Year
  Sex: Female

DRUGS (2)
  1. PRISTIQ [Suspect]
  2. ZEGERID [Suspect]

REACTIONS (2)
  - CHROMATURIA [None]
  - PARAESTHESIA [None]
